FAERS Safety Report 11575646 (Version 1)
Quarter: 2015Q3

REPORT INFORMATION
  Report Type: Spontaneous
  Country: GB (occurrence: GB)
  Receive Date: 20150930
  Receipt Date: 20150930
  Transmission Date: 20151125
  Serious: Yes (Life-Threatening, Other)
  Sender: FDA-Public Use
  Company Number: GB-WATSON-2015-18891

PATIENT
  Age: 37 Year
  Sex: Female
  Weight: 101 kg

DRUGS (7)
  1. METRONIDAZOLE (UNKNOWN) [Suspect]
     Active Substance: METRONIDAZOLE
     Indication: CAESAREAN SECTION
     Dosage: 500 MG, UNK
     Route: 042
     Dates: start: 20150802, end: 20150802
  2. CEFUROXIME SODIUM (UNKNOWN) [Suspect]
     Active Substance: CEFUROXIME SODIUM
     Indication: CAESAREAN SECTION
     Dosage: 1.5 G, UNK
     Route: 042
     Dates: start: 20150802, end: 20150802
  3. OXYTOCIN CITRATE [Concomitant]
     Active Substance: OXYTOCIN CITRATE
     Indication: CAESAREAN SECTION
     Dosage: 5 IU, UNK
     Route: 042
     Dates: start: 20150802, end: 20150802
  4. MISOPROSTOL. [Concomitant]
     Active Substance: MISOPROSTOL
     Indication: CAESAREAN SECTION
     Dosage: 800 ?G, UNK
     Route: 054
     Dates: start: 20150802, end: 20150802
  5. SYNTOMETRINE                       /00145001/ [Concomitant]
     Active Substance: ERGONOVINE\OXYTOCIN
     Indication: CAESAREAN SECTION
     Dosage: UNK, 5 UNITS/500 MG
     Route: 030
     Dates: start: 20150802, end: 20150802
  6. CARBOPROST [Suspect]
     Active Substance: CARBOPROST
     Indication: CAESAREAN SECTION
     Dosage: 250 ?G, UNK
     Route: 030
     Dates: start: 20150802, end: 20150802
  7. ONDANSETRON                        /00955302/ [Concomitant]
     Indication: CAESAREAN SECTION
     Dosage: 4 MG, UNK
     Route: 042
     Dates: start: 20150802, end: 20150802

REACTIONS (1)
  - Anaphylactic reaction [Recovered/Resolved]

NARRATIVE: CASE EVENT DATE: 20150802
